FAERS Safety Report 6876032-0 (Version None)
Quarter: 2010Q3

REPORT INFORMATION
  Report Type: 
  Country: None (occurrence: None)
  Receive Date: 20100727
  Receipt Date: 20100716
  Transmission Date: 20110219
  Serious: Yes (Other)
  Sender: FDA-Public Use
  Company Number: US-JNJFOC-20100102060

PATIENT
  Sex: Female

DRUGS (9)
  1. REMICADE [Suspect]
     Indication: PSORIATIC ARTHROPATHY
     Route: 042
  2. METHOTREXATE [Suspect]
     Indication: PRODUCT USED FOR UNKNOWN INDICATION
  3. PRINIVIL [Concomitant]
  4. ORTHO TRI-CYCLEN [Concomitant]
  5. RELAFEN [Concomitant]
  6. PRILOSEC [Concomitant]
  7. FOLIC ACID [Concomitant]
  8. VITAMIN B-12 [Concomitant]
  9. BENADRYL [Concomitant]

REACTIONS (9)
  - CHEST DISCOMFORT [None]
  - DIZZINESS [None]
  - DYSPEPSIA [None]
  - DYSPNOEA [None]
  - FATIGUE [None]
  - LUNG NEOPLASM [None]
  - PNEUMONIA [None]
  - PULMONARY FIBROSIS [None]
  - UPPER-AIRWAY COUGH SYNDROME [None]
